FAERS Safety Report 20649166 (Version 2)
Quarter: 2022Q2

REPORT INFORMATION
  Report Type: Spontaneous
  Country: AR (occurrence: AR)
  Receive Date: 20220329
  Receipt Date: 20220412
  Transmission Date: 20220721
  Serious: Yes (Other)
  Sender: FDA-Public Use
  Company Number: AR-PFIZER INC-202200462593

PATIENT
  Age: 82 Year
  Sex: Female

DRUGS (2)
  1. XELJANZ [Suspect]
     Active Substance: TOFACITINIB CITRATE
     Indication: Rheumatoid arthritis
     Dosage: 5 MG, 2X/DAY
     Dates: start: 20160524, end: 202202
  2. XELJANZ [Suspect]
     Active Substance: TOFACITINIB CITRATE
     Dosage: 5 MG, 2X/DAY
     Dates: start: 2022

REACTIONS (5)
  - Cataract [Not Recovered/Not Resolved]
  - Electrocardiogram abnormal [Not Recovered/Not Resolved]
  - Melanocytic naevus [Unknown]
  - Confusional state [Not Recovered/Not Resolved]
  - Cyst [Unknown]

NARRATIVE: CASE EVENT DATE: 20220216
